FAERS Safety Report 10575197 (Version 1)
Quarter: 2014Q4

REPORT INFORMATION
  Report Type: Report from Study
  Country: US (occurrence: US)
  Receive Date: 20141111
  Receipt Date: 20141111
  Transmission Date: 20150529
  Serious: Yes (Other)
  Sender: FDA-Public Use
  Company Number: US-ROCHE-1488339

PATIENT
  Age: 56 Year
  Sex: Female

DRUGS (3)
  1. CAPECITABINE. [Suspect]
     Active Substance: CAPECITABINE
     Indication: BREAST CANCER METASTATIC
     Dosage: ON DAY 1 - 14 OF EACH 21 DAY CYCLE
     Route: 048
  2. BOSUTINIB [Suspect]
     Active Substance: BOSUTINIB
     Indication: BREAST CANCER METASTATIC
     Dosage: DRUG STOPPED ON STUDY DAY 8.
     Route: 048
  3. BOSUTINIB [Suspect]
     Active Substance: BOSUTINIB
     Dosage: RESTARTED AT REDUCED DOSE ON STUDY DAY 14.
     Route: 048

REACTIONS (1)
  - Neuralgia [Recovered/Resolved]
